FAERS Safety Report 6995101-8 (Version None)
Quarter: 2010Q3

REPORT INFORMATION
  Report Type: 
  Country: None (occurrence: None)
  Receive Date: 20100915
  Receipt Date: 20100907
  Transmission Date: 20110219
  Serious: Yes (Hospitalization)
  Sender: FDA-Public Use
  Company Number: TPA2010A04610

PATIENT
  Age: 86 Year
  Sex: Male
  Weight: 94.8018 kg

DRUGS (13)
  1. PIOGLITAZONE HCL [Suspect]
     Indication: CARDIOVASCULAR EVENT PROPHYLAXIS
     Dosage: 15 MG, 1 IN 1 D, PER ORAL, 30 MG, 1 IN 1 D, PER ORAL, 45 MG, 1 IN 1 D, PER ORAL
     Route: 048
     Dates: start: 20070726, end: 20070822
  2. PIOGLITAZONE HCL [Suspect]
     Indication: CEREBROVASCULAR ACCIDENT PROPHYLAXIS
     Dosage: 15 MG, 1 IN 1 D, PER ORAL, 30 MG, 1 IN 1 D, PER ORAL, 45 MG, 1 IN 1 D, PER ORAL
     Route: 048
     Dates: start: 20070726, end: 20070822
  3. PIOGLITAZONE HCL [Suspect]
     Indication: CARDIOVASCULAR EVENT PROPHYLAXIS
     Dosage: 15 MG, 1 IN 1 D, PER ORAL, 30 MG, 1 IN 1 D, PER ORAL, 45 MG, 1 IN 1 D, PER ORAL
     Route: 048
     Dates: start: 20070823, end: 20070921
  4. PIOGLITAZONE HCL [Suspect]
     Indication: CEREBROVASCULAR ACCIDENT PROPHYLAXIS
     Dosage: 15 MG, 1 IN 1 D, PER ORAL, 30 MG, 1 IN 1 D, PER ORAL, 45 MG, 1 IN 1 D, PER ORAL
     Route: 048
     Dates: start: 20070823, end: 20070921
  5. PIOGLITAZONE HCL [Suspect]
     Indication: CARDIOVASCULAR EVENT PROPHYLAXIS
     Dosage: 15 MG, 1 IN 1 D, PER ORAL, 30 MG, 1 IN 1 D, PER ORAL, 45 MG, 1 IN 1 D, PER ORAL
     Route: 048
     Dates: start: 20070922, end: 20080324
  6. PIOGLITAZONE HCL [Suspect]
     Indication: CEREBROVASCULAR ACCIDENT PROPHYLAXIS
     Dosage: 15 MG, 1 IN 1 D, PER ORAL, 30 MG, 1 IN 1 D, PER ORAL, 45 MG, 1 IN 1 D, PER ORAL
     Route: 048
     Dates: start: 20070922, end: 20080324
  7. WARFARIN SODIUM [Concomitant]
  8. DIGOXIN [Concomitant]
  9. LIPITOR [Concomitant]
  10. FUROSEMIDE [Concomitant]
  11. METOPROLOL SUCCINATE [Concomitant]
  12. LUPRON [Concomitant]
  13. BICALUTAMIDE [Concomitant]

REACTIONS (29)
  - AGITATION [None]
  - ALCOHOL USE [None]
  - ALCOHOL WITHDRAWAL SYNDROME [None]
  - AMMONIA INCREASED [None]
  - ANAEMIA [None]
  - ATELECTASIS [None]
  - ATRIAL FIBRILLATION [None]
  - BILIRUBIN URINE [None]
  - BLOOD CREATINE PHOSPHOKINASE INCREASED [None]
  - BLOOD URINE PRESENT [None]
  - CARDIAC FAILURE CONGESTIVE [None]
  - CONFUSIONAL STATE [None]
  - DECREASED APPETITE [None]
  - DISORIENTATION [None]
  - ENDOCARDITIS [None]
  - FLANK PAIN [None]
  - GALLBLADDER DISORDER [None]
  - HAEMATURIA [None]
  - HEPATOCELLULAR INJURY [None]
  - HYPERTENSION [None]
  - MENTAL IMPAIRMENT [None]
  - MUSCLE SPASMS [None]
  - PULMONARY HYPERTENSION [None]
  - PYREXIA [None]
  - RESPIRATORY RATE INCREASED [None]
  - STAPHYLOCOCCAL BACTERAEMIA [None]
  - TACHYCARDIA [None]
  - TROPONIN I INCREASED [None]
  - URINARY TRACT INFECTION [None]
